FAERS Safety Report 22917740 (Version 8)
Quarter: 2024Q1

REPORT INFORMATION
  Report Type: Report from Study
  Country: DE (occurrence: DE)
  Receive Date: 20230907
  Receipt Date: 20240220
  Transmission Date: 20240410
  Serious: Yes (Hospitalization, Other)
  Sender: FDA-Public Use
  Company Number: DE-PFM-2023-04952

PATIENT
  Sex: Female
  Weight: 84 kg

DRUGS (4)
  1. BRAFTOVI [Suspect]
     Active Substance: ENCORAFENIB
     Indication: Colorectal cancer
     Dosage: 150 MG
     Route: 048
     Dates: start: 20230713, end: 20230716
  2. BRAFTOVI [Suspect]
     Active Substance: ENCORAFENIB
     Dosage: 300 MG
     Route: 065
  3. CETUXIMAB [Suspect]
     Active Substance: CETUXIMAB
     Indication: Colorectal cancer
     Dosage: 400 MG/M2, WEEKLY (FORMULATION: LIQUID DILUTION)
     Route: 042
     Dates: start: 20230713, end: 20230713
  4. ELIQUIS [Concomitant]
     Active Substance: APIXABAN
     Indication: Prophylaxis
     Dosage: 5 MG, TWICE DAILY
     Route: 048
     Dates: start: 20230712

REACTIONS (3)
  - Pneumonitis [Recovered/Resolved]
  - Off label use [Unknown]
  - Prescribed underdose [Unknown]

NARRATIVE: CASE EVENT DATE: 20230713
